FAERS Safety Report 14107180 (Version 1)
Quarter: 2017Q4

REPORT INFORMATION
  Report Type: Spontaneous
  Country: US (occurrence: US)
  Receive Date: 20171019
  Receipt Date: 20171019
  Transmission Date: 20180321
  Serious: No
  Sender: FDA-Public Use
  Company Number: US-BAYER-2017-181953

PATIENT
  Age: 80 Year
  Sex: Male
  Weight: 89 kg

DRUGS (7)
  1. MILK OF MAGNESIA CHERRY [Suspect]
     Active Substance: MAGNESIUM HYDROXIDE
     Indication: CONSTIPATION
     Dosage: TOOK A 3 TABLESPOONS AT NIGHT BEFOR BED
     Dates: end: 201707
  2. MILK OF MAGNESIA CHERRY [Suspect]
     Active Substance: MAGNESIUM HYDROXIDE
     Indication: CONSTIPATION
     Dosage: TOOK A 4 TABLESPOONS AT NIGHT BEFOR BEDUNK
     Dates: end: 201707
  3. BAYER ASPIRIN [Concomitant]
     Active Substance: ASPIRIN
     Indication: ISCHAEMIC HEART DISEASE PROPHYLAXIS
  4. PRILOSEC [Concomitant]
     Active Substance: OMEPRAZOLE MAGNESIUM
  5. MILK OF MAGNESIA CHERRY [Suspect]
     Active Substance: MAGNESIUM HYDROXIDE
     Indication: CONSTIPATION
     Dosage: TOOK A 2 TABLESPOONS DOSE AT NIGHT BEFORE BED
     Route: 048
     Dates: end: 201707
  6. MIRALAX [Suspect]
     Active Substance: POLYETHYLENE GLYCOL 3350
     Indication: GASTROINTESTINAL DISORDER
     Dosage: 1 PACKET DOSE
     Route: 048
     Dates: start: 2015, end: 2016
  7. ALEVE [Concomitant]
     Active Substance: NAPROXEN SODIUM
     Indication: BACK PAIN
     Dosage: UNK UNK, QD
     Route: 048

REACTIONS (2)
  - Product use issue [None]
  - Constipation [Recovered/Resolved]

NARRATIVE: CASE EVENT DATE: 2015
